FAERS Safety Report 9370417 (Version 1)
Quarter: 2013Q2

REPORT INFORMATION
  Report Type: Spontaneous
  Country: GB (occurrence: GB)
  Receive Date: 20130626
  Receipt Date: 20130626
  Transmission Date: 20140414
  Serious: Yes (Death)
  Sender: FDA-Public Use
  Company Number: GB-PFIZER INC-2013186084

PATIENT
  Age: 63 Year
  Sex: Female

DRUGS (3)
  1. CARBOPLATIN [Suspect]
     Indication: OVARIAN CANCER METASTATIC
     Dosage: 3 WEEKLY CARBOPLATIN (AUC5)
     Dates: start: 2012
  2. PACLITAXEL [Suspect]
     Indication: OVARIAN CANCER METASTATIC
     Dosage: 75 MG/M2, WEEKLY (CYCLIC)
     Dates: start: 2012
  3. HEPARIN [Concomitant]
     Indication: PULMONARY EMBOLISM
     Dosage: UNK
     Dates: start: 2012

REACTIONS (1)
  - Tumour lysis syndrome [Fatal]
